APPROVED DRUG PRODUCT: CARBAMAZEPINE
Active Ingredient: CARBAMAZEPINE
Strength: 100MG/5ML
Dosage Form/Route: SUSPENSION;ORAL
Application: A075714 | Product #001 | TE Code: AB
Applicant: CHARTWELL RX SCIENCES LLC
Approved: Jun 5, 2002 | RLD: No | RS: No | Type: RX